FAERS Safety Report 6256328-6 (Version None)
Quarter: 2009Q2

REPORT INFORMATION
  Report Type: 
  Country: None (occurrence: None)
  Receive Date: 20090630
  Receipt Date: 20090630
  Transmission Date: 20091009
  Serious: Yes (Other)
  Sender: FDA-Public Use
  Company Number: None

PATIENT
  Age: 32 Year
  Sex: Male
  Weight: 78.0187 kg

DRUGS (1)
  1. LIALDA [Suspect]
     Indication: COLITIS ULCERATIVE
     Dosage: 4 TABLES DAILY PO
     Route: 048
     Dates: start: 20090623, end: 20090625

REACTIONS (8)
  - BACK PAIN [None]
  - DYSSTASIA [None]
  - HEADACHE [None]
  - HYPERHIDROSIS [None]
  - MUSCULOSKELETAL PAIN [None]
  - MUSCULOSKELETAL STIFFNESS [None]
  - PYREXIA [None]
  - VOMITING [None]
